FAERS Safety Report 9298388 (Version 2)
Quarter: 2013Q2

REPORT INFORMATION
  Report Type: Spontaneous
  Country: AU (occurrence: AU)
  Receive Date: 20130520
  Receipt Date: 20130603
  Transmission Date: 20140414
  Serious: Yes (Life-Threatening, Hospitalization, Other)
  Sender: FDA-Public Use
  Company Number: AU-PFIZER INC-2013152795

PATIENT
  Sex: Male

DRUGS (1)
  1. MINIPRESS [Suspect]
     Indication: BENIGN PROSTATIC HYPERPLASIA
     Dosage: 1 MG, 2X/DAY
     Route: 048
     Dates: start: 20130515

REACTIONS (3)
  - Hypotension [Recovered/Resolved]
  - Hypersensitivity [Unknown]
  - Depressed level of consciousness [Unknown]
